FAERS Safety Report 19777582 (Version 4)
Quarter: 2022Q1

REPORT INFORMATION
  Report Type: Report from Study
  Country: US (occurrence: US)
  Receive Date: 20210902
  Receipt Date: 20220214
  Transmission Date: 20220424
  Serious: No
  Sender: FDA-Public Use
  Company Number: US-BIOVITRUM-2021US7986

PATIENT
  Sex: Female

DRUGS (1)
  1. KINERET [Suspect]
     Active Substance: ANAKINRA
     Indication: Rheumatoid arthritis
     Route: 058
     Dates: start: 20190502

REACTIONS (9)
  - Bronchitis [Unknown]
  - Nasopharyngitis [Unknown]
  - Nasal congestion [Unknown]
  - Productive cough [Unknown]
  - Ear discomfort [Unknown]
  - Sinusitis [Unknown]
  - Illness [Unknown]
  - Gastroenteritis viral [Unknown]
  - Hypertonic bladder [Unknown]
